FAERS Safety Report 5872444-2 (Version None)
Quarter: 2008Q3

REPORT INFORMATION
  Report Type: 
  Country: None (occurrence: None)
  Receive Date: 20080905
  Receipt Date: 20080828
  Transmission Date: 20090109
  Serious: Yes (Other)
  Sender: FDA-Public Use
  Company Number: PHHY2008DE19812

PATIENT
  Age: 44 Year
  Sex: Female

DRUGS (2)
  1. CLOZARIL [Suspect]
     Indication: SCHIZOPHRENIA
     Dosage: 400 MG / DAY
     Route: 048
     Dates: start: 19880101
  2. DIAZEPAM [Concomitant]
     Dosage: 3 X 2.5 MG / DAY
     Route: 048

REACTIONS (1)
  - ACUTE MYELOID LEUKAEMIA [None]
